FAERS Safety Report 6709588-9 (Version None)
Quarter: 2010Q2

REPORT INFORMATION
  Report Type: 
  Country: None (occurrence: None)
  Receive Date: 20100503
  Receipt Date: 20100503
  Transmission Date: 20101027
  Serious: Yes (Other)
  Sender: FDA-Public Use
  Company Number: None

PATIENT
  Age: 3 Year
  Sex: Female
  Weight: 13.6079 kg

DRUGS (4)
  1. CHILDREN'S MOTRIN [Suspect]
     Indication: PAIN
     Dosage: 7.5 ML EVERY 6 HOUR PO, AS NEEDED
     Route: 048
  2. CHILDREN'S MOTRIN [Suspect]
     Indication: PYREXIA
     Dosage: 7.5 ML EVERY 6 HOUR PO, AS NEEDED
     Route: 048
  3. CHILDREN'S TYLENOL PLUS FLU VARIOUS MCNEIL PPC [Suspect]
     Indication: COUGH
     Dosage: 5 ML EVERY 5 HOURS PO , AS NEEDED
     Route: 048
  4. CHILDREN'S TYLENOL PLUS FLU VARIOUS MCNEIL PPC [Suspect]
     Indication: PYREXIA
     Dosage: 5 ML EVERY 5 HOURS PO , AS NEEDED
     Route: 048

REACTIONS (2)
  - PNEUMONIA [None]
  - PRODUCT QUALITY ISSUE [None]
